FAERS Safety Report 8314256-6 (Version None)
Quarter: 2012Q2

REPORT INFORMATION
  Report Type: 
  Country: None (occurrence: None)
  Receive Date: 20120426
  Receipt Date: 20120419
  Transmission Date: 20120825
  Serious: Yes (Life-Threatening)
  Sender: FDA-Public Use
  Company Number: BE-TEVA-014340

PATIENT
  Age: 70 Year
  Sex: Female

DRUGS (2)
  1. ZIAC [Suspect]
  2. ACETYLSALICYLIC ACID SRT [Concomitant]
     Dosage: 100 MILLIGRAM; 100 MG, QD

REACTIONS (2)
  - SHOCK [None]
  - NON-CARDIOGENIC PULMONARY OEDEMA [None]
